FAERS Safety Report 6460460-1 (Version None)
Quarter: 2009Q4

REPORT INFORMATION
  Report Type: 
  Country: None (occurrence: None)
  Receive Date: 20091130
  Receipt Date: 20091117
  Transmission Date: 20100525
  Serious: Yes (Life-Threatening, Hospitalization)
  Sender: FDA-Public Use
  Company Number: ES-ROCHE-669765

PATIENT
  Sex: Male

DRUGS (17)
  1. BONIVA [Suspect]
     Indication: DRUG USE FOR UNKNOWN INDICATION
     Dosage: 150
     Route: 065
     Dates: start: 20060701
  2. CELLCEPT [Suspect]
     Route: 065
     Dates: start: 20060701
  3. ROCALTROL [Suspect]
     Indication: DRUG USE FOR UNKNOWN INDICATION
     Dosage: 1 TABLET MONDAY-THURSDAY; ROCALTROL 0.25
     Route: 065
     Dates: start: 20060701
  4. FERINJECT [Suspect]
     Dosage: 1 UNIQUE ADMINISTRATION
     Route: 042
     Dates: start: 20091106
  5. SODIUM BICARBONATE IN PLASTIC CONTAINER [Concomitant]
     Dosage: 1 TEASPOON/DAY
     Route: 065
     Dates: start: 20060701
  6. BECOZYME C FORTE [Concomitant]
     Route: 065
     Dates: start: 20060701
  7. PROGRAF [Concomitant]
     Indication: DRUG USE FOR UNKNOWN INDICATION
     Dosage: 1 MG 8 AM + 1.5 MG 8 PM: EVEN DAYS; 1-0-1: ODD DAYS
     Dates: start: 20060701
  8. DACORTIN [Concomitant]
     Indication: DRUG USE FOR UNKNOWN INDICATION
     Dates: start: 20090801
  9. ENALAPRIL MALEATE [Concomitant]
     Dates: start: 20060701
  10. ZYLORIC [Concomitant]
     Dates: start: 20060701
  11. OMEPRAZOLE [Concomitant]
     Dates: start: 20060701
  12. CARDURA [Concomitant]
     Dates: start: 20060701
  13. ASPOL [Concomitant]
     Dates: start: 20060701
  14. ARANESP [Concomitant]
     Dosage: DOSE FORM: INJECTION
     Dates: start: 20060701
  15. ADIRO [Concomitant]
     Dosage: ADIRO 100
     Dates: start: 20090801
  16. PREVENCOR [Concomitant]
     Dosage: PREVENCOR 10
     Dates: start: 20060701
  17. ORAL IRON [Concomitant]
     Dosage: FEROGRADUMET
     Dates: start: 20060701

REACTIONS (3)
  - ANAEMIA [None]
  - DYSPNOEA [None]
  - PULMONARY OEDEMA [None]
